FAERS Safety Report 4902449-7 (Version None)
Quarter: 2006Q1

REPORT INFORMATION
  Report Type: 
  Country: None (occurrence: None)
  Receive Date: 20060202
  Receipt Date: 20060124
  Transmission Date: 20060701
  Serious: Yes (Other)
  Sender: FDA-Public Use
  Company Number: 2006-01-1478

PATIENT
  Age: 62 Year
  Sex: Male

DRUGS (2)
  1. TEMODAL [Suspect]
     Indication: ANAPLASTIC ASTROCYTOMA
     Dosage: 140 MG QD ORAL
     Route: 048
     Dates: start: 20051208, end: 20060113
  2. RADIATION THERAPY [Concomitant]

REACTIONS (3)
  - CEREBRAL VENOUS THROMBOSIS [None]
  - DISEASE PROGRESSION [None]
  - GENERAL PHYSICAL HEALTH DETERIORATION [None]
